FAERS Safety Report 7218598-7 (Version None)
Quarter: 2011Q1

REPORT INFORMATION
  Report Type: 
  Country: None (occurrence: None)
  Receive Date: 20110110
  Receipt Date: 20101231
  Transmission Date: 20110831
  Serious: Yes (Death)
  Sender: FDA-Public Use
  Company Number: US-PFIZER INC-2011002455

PATIENT
  Age: 37 Year
  Sex: Female

DRUGS (13)
  1. METFORMIN HCL [Suspect]
     Route: 048
  2. TOPIRAMATE [Suspect]
     Route: 048
  3. DULOXETINE [Suspect]
     Route: 048
  4. PREDNISONE [Suspect]
     Route: 048
  5. CLONAZEPAM [Suspect]
     Route: 048
  6. LEVOTHYROXINE [Suspect]
     Route: 048
  7. BUPROPION [Suspect]
     Route: 048
  8. RANITIDINE [Suspect]
     Route: 048
  9. FENTANYL [Suspect]
     Route: 048
  10. SIMVASTATIN [Suspect]
     Route: 048
  11. ARIPIPRAZOLE [Suspect]
     Route: 048
  12. GEMFIBROZIL [Suspect]
     Route: 048
  13. OXCARBAZEPINE [Suspect]
     Route: 048

REACTIONS (3)
  - RESPIRATORY ARREST [None]
  - CARDIAC ARREST [None]
  - COMPLETED SUICIDE [None]
